FAERS Safety Report 16607989 (Version 2)
Quarter: 2019Q3

REPORT INFORMATION
  Report Type: Spontaneous
  Country: US (occurrence: US)
  Receive Date: 20190722
  Receipt Date: 20190918
  Transmission Date: 20191004
  Serious: Yes (Other)
  Sender: FDA-Public Use
  Company Number: US-BAYER-2019-134550

PATIENT
  Age: 70 Year

DRUGS (1)
  1. CIPRO [Suspect]
     Active Substance: CIPROFLOXACIN HYDROCHLORIDE
     Indication: INFECTION
     Dosage: 500 MG
     Dates: start: 2019

REACTIONS (2)
  - Drug ineffective [None]
  - Renal impairment [None]

NARRATIVE: CASE EVENT DATE: 2019
